FAERS Safety Report 11765616 (Version 1)
Quarter: 2015Q4

REPORT INFORMATION
  Report Type: Spontaneous
  Country: US (occurrence: US)
  Receive Date: 20151120
  Receipt Date: 20151120
  Transmission Date: 20160304
  Serious: No
  Sender: FDA-Public Use
  Company Number: US-ELI_LILLY_AND_COMPANY-US201406001628

PATIENT
  Age: 51 Year
  Sex: Female
  Weight: 52.15 kg

DRUGS (6)
  1. ESTROGEN NOS [Concomitant]
     Active Substance: ESTROGENS
  2. LIPITOR [Concomitant]
     Active Substance: ATORVASTATIN CALCIUM
  3. PROGESTERONE. [Concomitant]
     Active Substance: PROGESTERONE
  4. FORTEO [Suspect]
     Active Substance: TERIPARATIDE
     Indication: OSTEOPOROSIS
     Dosage: UNK, QD
     Route: 065
     Dates: start: 20140507
  5. CALCIUM [Concomitant]
     Active Substance: CALCIUM
  6. FORTEO [Suspect]
     Active Substance: TERIPARATIDE
     Dosage: UNK, QD
     Route: 065

REACTIONS (2)
  - Underdose [Recovered/Resolved]
  - Poor quality sleep [Unknown]

NARRATIVE: CASE EVENT DATE: 20140523
